FAERS Safety Report 6342672-0 (Version None)
Quarter: 2009Q3

REPORT INFORMATION
  Report Type: 
  Country: None (occurrence: None)
  Receive Date: 20090908
  Receipt Date: 20090824
  Transmission Date: 20100115
  Serious: Yes (Life-Threatening)
  Sender: FDA-Public Use
  Company Number: IE-CELGENEUS-229-20484-09081055

PATIENT
  Sex: Female
  Weight: 60 kg

DRUGS (2)
  1. INNOHEP [Suspect]
     Indication: PULMONARY EMBOLISM
     Route: 058
     Dates: start: 20090723, end: 20090727
  2. INNOHEP [Suspect]
     Indication: HIP SURGERY
     Route: 058
     Dates: start: 20090710

REACTIONS (1)
  - HEPARIN-INDUCED THROMBOCYTOPENIA [None]
